FAERS Safety Report 6782566-X (Version None)
Quarter: 2010Q2

REPORT INFORMATION
  Report Type: 
  Country: None (occurrence: None)
  Receive Date: 20100621
  Receipt Date: 20100507
  Transmission Date: 20101027
  Serious: Yes (Other)
  Sender: FDA-Public Use
  Company Number: PR-TYCO HEALTHCARE/MALLINCKRODT-T201001415

PATIENT

DRUGS (1)
  1. CHEETAH [Suspect]
     Indication: COMPUTERISED TOMOGRAM
     Dosage: UNK
     Dates: start: 20100420, end: 20100420

REACTIONS (2)
  - BLINDNESS [None]
  - HYPERSENSITIVITY [None]
